FAERS Safety Report 10956217 (Version 1)
Quarter: 2015Q1

REPORT INFORMATION
  Report Type: Spontaneous
  Country: US (occurrence: US)
  Receive Date: 20150326
  Receipt Date: 20150326
  Transmission Date: 20150721
  Serious: No
  Sender: FDA-Public Use
  Company Number: US-MYLANLABS-2014S1007945

PATIENT
  Sex: Female

DRUGS (1)
  1. ALBUTEROL SULFATE SOLUTION FOR INHALATION [Suspect]
     Active Substance: ALBUTEROL SULFATE
     Indication: CHRONIC OBSTRUCTIVE PULMONARY DISEASE
     Dosage: UNK UNK,PRN
     Route: 055

REACTIONS (2)
  - Drug effect decreased [Recovered/Resolved]
  - Pulmonary oedema [Recovered/Resolved]
